FAERS Safety Report 7698705-2 (Version None)
Quarter: 2011Q3

REPORT INFORMATION
  Report Type: 
  Country: None (occurrence: None)
  Receive Date: 20110819
  Receipt Date: 20110809
  Transmission Date: 20111222
  Serious: Yes (Hospitalization, Other)
  Sender: FDA-Public Use
  Company Number: US-BAYER-201037494NA

PATIENT
  Age: 28 Year
  Sex: Female
  Weight: 56.689 kg

DRUGS (7)
  1. AMOXICILLIN [Concomitant]
  2. TRAMADOL HCL [Concomitant]
     Dosage: 50 MG, UNK
  3. BENADRYL [Concomitant]
  4. YAZ [Suspect]
     Indication: CONTRACEPTION
     Dosage: UNK
     Route: 048
     Dates: start: 20070801, end: 20091003
  5. ACYCLOVIR ALPHARMA [ACICLOVIR SODIUM] [Concomitant]
     Dosage: 400 MG, UNK
  6. FLUCONAZOLE [Concomitant]
     Dosage: 150 MG, UNK
  7. SOLU-MEDROL [Concomitant]
     Dosage: 125 MG, UNK

REACTIONS (2)
  - PAIN [None]
  - DEEP VEIN THROMBOSIS [None]
